FAERS Safety Report 13086279 (Version 2)
Quarter: 2017Q2

REPORT INFORMATION
  Report Type: Spontaneous
  Country: US (occurrence: US)
  Receive Date: 20170104
  Receipt Date: 20170404
  Transmission Date: 20170830
  Serious: No
  Sender: FDA-Public Use
  Company Number: US-ALLERGAN-1675965US

PATIENT
  Age: 3 Decade
  Sex: Male

DRUGS (4)
  1. VRAYLAR [Suspect]
     Active Substance: CARIPRAZINE
     Dosage: 1.5 MG, UNK
     Route: 048
     Dates: end: 201610
  2. VRAYLAR [Suspect]
     Active Substance: CARIPRAZINE
     Indication: BIPOLAR I DISORDER
     Dosage: 3 MG, QD
     Route: 048
     Dates: start: 20161020
  3. WARFARIN [Concomitant]
     Active Substance: WARFARIN
     Indication: COAGULOPATHY
     Dosage: UNK UNK, UNKNOWN
     Route: 048
  4. VRAYLAR [Suspect]
     Active Substance: CARIPRAZINE
     Dosage: 6 MG, QD
     Route: 048

REACTIONS (1)
  - Akathisia [Recovering/Resolving]

NARRATIVE: CASE EVENT DATE: 20161026
